FAERS Safety Report 6696335-2 (Version None)
Quarter: 2010Q2

REPORT INFORMATION
  Report Type: 
  Country: None (occurrence: None)
  Receive Date: 20100419
  Receipt Date: 20090810
  Transmission Date: 20101027
  Serious: No
  Sender: FDA-Public Use
  Company Number: 2009-00415

PATIENT
  Sex: Female

DRUGS (1)
  1. ZICAM COLD REMEDY GEL SWABS [Suspect]
     Dates: start: 20090401

REACTIONS (2)
  - AGEUSIA [None]
  - ANOSMIA [None]
